FAERS Safety Report 4304520-X (Version None)
Quarter: 2004Q1

REPORT INFORMATION
  Report Type: 
  Country: None (occurrence: None)
  Receive Date: 20040224
  Receipt Date: 20040218
  Transmission Date: 20041129
  Serious: Yes (Hospitalization)
  Sender: FDA-Public Use
  Company Number: 200410532GDS

PATIENT
  Age: 83 Year
  Sex: Female

DRUGS (2)
  1. ASPIRIN [Suspect]
     Dosage: ORAL
     Route: 048
  2. CILOSTAZOL [Suspect]
     Dosage: ORAL
     Route: 048

REACTIONS (1)
  - EXTRADURAL HAEMATOMA [None]
